FAERS Safety Report 19842021 (Version 2)
Quarter: 2021Q3

REPORT INFORMATION
  Report Type: Spontaneous
  Country: US (occurrence: US)
  Receive Date: 20210915
  Receipt Date: 20210917
  Transmission Date: 20211014
  Serious: Yes (Other)
  Sender: FDA-Public Use
  Company Number: US-PFIZER INC-202101151204

PATIENT
  Age: 68 Year
  Sex: Female

DRUGS (3)
  1. PIQRAY [Concomitant]
     Active Substance: ALPELISIB
     Dosage: UNK
  2. IBRANCE [Suspect]
     Active Substance: PALBOCICLIB
     Dosage: 75 MG
     Dates: start: 20201101
  3. IBRANCE [Suspect]
     Active Substance: PALBOCICLIB
     Dosage: 75 MG
     Dates: start: 20190609, end: 20210901

REACTIONS (2)
  - Blood glucose increased [Unknown]
  - Neoplasm progression [Unknown]
